FAERS Safety Report 5886621-8 (Version None)
Quarter: 2008Q3

REPORT INFORMATION
  Report Type: 
  Country: None (occurrence: None)
  Receive Date: 20080917
  Receipt Date: 20080908
  Transmission Date: 20090109
  Serious: Yes (Hospitalization, Other)
  Sender: FDA-Public Use
  Company Number: PHHY2008GB13531

PATIENT
  Sex: Male

DRUGS (4)
  1. EXJADE [Suspect]
     Indication: THALASSAEMIA BETA
     Dosage: 750 MG (10MG/KG), UNK
     Route: 048
     Dates: start: 20080606
  2. EXJADE [Suspect]
     Dosage: 1.5 G/DAY (20MG/KG)
     Route: 048
     Dates: start: 20080704, end: 20080717
  3. EXJADE [Suspect]
     Dosage: 500 MG/DAY
     Route: 048
     Dates: start: 20080801
  4. EXJADE [Suspect]
     Dosage: 750 MG/DAY
     Route: 048
     Dates: start: 20080905

REACTIONS (7)
  - ABDOMINAL PAIN [None]
  - BLOOD CREATININE INCREASED [None]
  - DIZZINESS [None]
  - HEADACHE [None]
  - MOUTH ULCERATION [None]
  - RASH [None]
  - URINE PROTEIN/CREATININE RATIO INCREASED [None]
